FAERS Safety Report 8720483 (Version 2)
Quarter: 2012Q4

REPORT INFORMATION
  Report Type: Report from Study
  Country: US (occurrence: US)
  Receive Date: 20120813
  Receipt Date: 20121026
  Transmission Date: 20130627
  Serious: Yes (Death, Hospitalization, Other)
  Sender: FDA-Public Use
  Company Number: US-ROCHE-1095922

PATIENT
  Age: 58 Year
  Sex: Female
  Weight: 79 kg

DRUGS (9)
  1. BEVACIZUMAB [Suspect]
     Indication: ENDOMETRIAL CANCER
     Dosage: last dose administered on 12/May/2011
     Route: 042
     Dates: start: 20120512
  2. IXABEPILONE [Suspect]
     Indication: ENDOMETRIAL CANCER
     Dosage: last dose administerd:12/May/2011
     Route: 042
     Dates: start: 20120512
  3. CARBOPLATIN [Suspect]
     Indication: ENDOMETRIAL CANCER
     Dosage: AUC=6; last dose administered on:12/May/2011
     Route: 042
     Dates: start: 20110512
  4. NORCO [Concomitant]
  5. COMPAZINE [Concomitant]
  6. LOVENOX [Concomitant]
  7. PROTONIX [Concomitant]
  8. SYNTHROID [Concomitant]
  9. VENTOLIN [Concomitant]

REACTIONS (10)
  - Cardiac arrest [Fatal]
  - Aspiration [Recovered/Resolved]
  - Sepsis [Not Recovered/Not Resolved]
  - Hyperkalaemia [Recovered/Resolved]
  - Nausea [Not Recovered/Not Resolved]
  - Vomiting [Not Recovered/Not Resolved]
  - Supraventricular tachycardia [Recovered/Resolved]
  - Febrile neutropenia [Recovered/Resolved]
  - Abdominal distension [Not Recovered/Not Resolved]
  - Obstruction gastric [Not Recovered/Not Resolved]
